FAERS Safety Report 17313863 (Version 3)
Quarter: 2020Q1

REPORT INFORMATION
  Report Type: Spontaneous
  Country: US (occurrence: US)
  Receive Date: 20200124
  Receipt Date: 20200207
  Transmission Date: 20200409
  Serious: Yes (Other)
  Sender: FDA-Public Use
  Company Number: US-DRREDDYS-USA/USA/20/0119008

PATIENT
  Age: 70 Year
  Sex: Male

DRUGS (4)
  1. BRENTUXIMAB VEDOTIN [Suspect]
     Active Substance: BRENTUXIMAB VEDOTIN
     Indication: HODGKIN^S DISEASE NODULAR SCLEROSIS STAGE IV
     Route: 065
  2. DOXORUBICIN HYDROCHLORIDE LIPOSOME INJECTION 20 MG/10 ML (2 MG/ML) AND [Suspect]
     Active Substance: DOXORUBICIN HYDROCHLORIDE
     Indication: HODGKIN^S DISEASE NODULAR SCLEROSIS STAGE IV
     Route: 065
  3. VINBLASTINE [Suspect]
     Active Substance: VINBLASTINE
     Indication: HODGKIN^S DISEASE NODULAR SCLEROSIS STAGE IV
     Route: 065
  4. DACARBAZINE. [Suspect]
     Active Substance: DACARBAZINE
     Indication: HODGKIN^S DISEASE NODULAR SCLEROSIS STAGE IV
     Route: 065

REACTIONS (3)
  - Thrombocytopenia [Unknown]
  - Anaemia [Unknown]
  - Drug intolerance [Unknown]
